FAERS Safety Report 25051250 (Version 1)
Quarter: 2025Q1

REPORT INFORMATION
  Report Type: Spontaneous
  Country: US (occurrence: US)
  Receive Date: 20250307
  Receipt Date: 20250307
  Transmission Date: 20250409
  Serious: No
  Sender: CALLIDITAS THERAPEUTICS AB
  Company Number: US-Calliditas-2025CAL00537

PATIENT
  Age: 55 Year
  Sex: Male

DRUGS (8)
  1. TARPEYO [Suspect]
     Active Substance: BUDESONIDE
     Indication: IgA nephropathy
     Dosage: TAKE 2 CAPSULES (8 MG) BY MOUTH ONCE DAILY IN THE MORNING AT LEAST 1 HOUR BEFORE A MEAL FOR 14 DA...
     Route: 048
     Dates: start: 202405
  2. ALLOPURINOL [Concomitant]
     Active Substance: ALLOPURINOL
  3. LIPITOR [Concomitant]
     Active Substance: ATORVASTATIN CALCIUM
  4. COLCRYS [Concomitant]
     Active Substance: COLCHICINE
  5. FARXIGA [Concomitant]
     Active Substance: DAPAGLIFLOZIN PROPANEDIOL
  6. FISH OIL [COD-LIVER OIL] [Concomitant]
  7. LISINOPRIL [Concomitant]
     Active Substance: LISINOPRIL
  8. VITAMIN D2 [Concomitant]
     Active Substance: ERGOCALCIFEROL

REACTIONS (2)
  - Acne [Unknown]
  - Prescribed underdose [Unknown]
